FAERS Safety Report 8989419 (Version 2)
Quarter: 2013Q1

REPORT INFORMATION
  Report Type: Report from Study
  Country: JP (occurrence: JP)
  Receive Date: 20121227
  Receipt Date: 20130329
  Transmission Date: 20140127
  Serious: No
  Sender: FDA-Public Use
  Company Number: JP-OTSUKA-JP-2012-17256

PATIENT
  Age: 91 Year
  Sex: Male
  Weight: 46 kg

DRUGS (9)
  1. SAMSCA [Suspect]
     Indication: FLUID RETENTION
     Dosage: 7.5 MG MILLIGRAM(S), QAM
     Route: 048
     Dates: start: 20121107, end: 20121116
  2. LASIX [Suspect]
     Indication: CARDIAC FAILURE
     Dosage: 20 MG MILLIGRAM(S), DAILY DOSE
     Route: 042
     Dates: end: 20121116
  3. HANP [Concomitant]
     Indication: CARDIAC FAILURE
     Dosage: 1728 MCG, DAILY DOSE
     Route: 042
     Dates: end: 20121114
  4. BAYASPIRIN [Concomitant]
     Dosage: UNK
     Route: 048
  5. GLIMEPIRIDE [Concomitant]
     Dosage: UNK
     Route: 048
  6. NIKORANMART [Concomitant]
     Dosage: UNK
     Route: 048
  7. GLUCOBAY [Concomitant]
     Dosage: UNK
     Route: 048
  8. KREMEZIN [Concomitant]
     Dosage: UNK
     Route: 048
  9. KALIMATE [Concomitant]
     Dosage: UNK
     Route: 048

REACTIONS (1)
  - Hyponatraemia [Not Recovered/Not Resolved]
